FAERS Safety Report 23127156 (Version 2)
Quarter: 2023Q4

REPORT INFORMATION
  Report Type: Report from Study
  Country: US (occurrence: US)
  Receive Date: 20231030
  Receipt Date: 20231031
  Transmission Date: 20240110
  Serious: Yes (Other)
  Sender: FDA-Public Use
  Company Number: US-JNJFOC-20231056702

PATIENT
  Age: 89 Year
  Sex: Male

DRUGS (1)
  1. APALUTAMIDE [Suspect]
     Active Substance: APALUTAMIDE
     Indication: Prostate cancer
     Route: 048

REACTIONS (1)
  - Drug hypersensitivity [Unknown]

NARRATIVE: CASE EVENT DATE: 20231020
